FAERS Safety Report 10157827 (Version 1)
Quarter: 2014Q2

REPORT INFORMATION
  Report Type: Spontaneous
  Country: US (occurrence: US)
  Receive Date: 20140507
  Receipt Date: 20140507
  Transmission Date: 20141212
  Serious: Yes (Other)
  Sender: FDA-Public Use
  Company Number: US-ASTELLAS-2014US004628

PATIENT
  Sex: Male

DRUGS (1)
  1. ASTAGRAF XL [Suspect]
     Indication: RENAL TRANSPLANT
     Dosage: 1 MG, 6 TIMES A DAY
     Route: 048

REACTIONS (1)
  - Limb injury [Unknown]
